APPROVED DRUG PRODUCT: TOVIAZ
Active Ingredient: FESOTERODINE FUMARATE
Strength: 8MG
Dosage Form/Route: TABLET, EXTENDED RELEASE;ORAL
Application: N022030 | Product #002 | TE Code: AB
Applicant: PFIZER INC
Approved: Oct 31, 2008 | RLD: Yes | RS: Yes | Type: RX

PATENTS:
Patent 8088398 | Expires: Jun 7, 2027
Patent 7807715 | Expires: Jun 7, 2027
Patent 8501723 | Expires: Jun 7, 2027
Patent 7807715*PED | Expires: Dec 7, 2027
Patent 8088398*PED | Expires: Dec 7, 2027
Patent 8501723*PED | Expires: Dec 7, 2027